FAERS Safety Report 11386560 (Version 1)
Quarter: 2015Q3

REPORT INFORMATION
  Report Type: Spontaneous
  Country: US (occurrence: None)
  Receive Date: 20150814
  Receipt Date: 20150814
  Transmission Date: 20151125
  Serious: Yes (Death)
  Sender: FDA-Public Use
  Company Number: None

PATIENT
  Age: 63 Year
  Sex: Female
  Weight: 82.1 kg

DRUGS (19)
  1. DOCETAXOL [Suspect]
     Active Substance: DOCETAXEL
     Indication: BREAST CANCER STAGE II
     Route: 042
     Dates: start: 20150804, end: 20150804
  2. ZOFRAN [Concomitant]
     Active Substance: ONDANSETRON HYDROCHLORIDE
  3. DIPHENHYDRAMINE. [Concomitant]
     Active Substance: DIPHENHYDRAMINE
  4. MULTIVITAMIN [Concomitant]
     Active Substance: VITAMINS
  5. DECADRON [Concomitant]
     Active Substance: DEXAMETHASONE
  6. ALOXI [Concomitant]
     Active Substance: PALONOSETRON HYDROCHLORIDE
  7. ASA [Concomitant]
     Active Substance: ASPIRIN
  8. CARBOPLATIN. [Concomitant]
     Active Substance: CARBOPLATIN
  9. LEVOTHYROXINE. [Concomitant]
     Active Substance: LEVOTHYROXINE
  10. OMEGA-3 FATTY ACIDS [Concomitant]
     Active Substance: OMEGA-3 FATTY ACIDS
  11. CALCIUM + VITAMIN D [Concomitant]
     Active Substance: CALCIUM\VITAMIN D
  12. DOCETAXOL [Concomitant]
     Active Substance: DOCETAXEL
  13. NEULASTA [Concomitant]
     Active Substance: PEGFILGRASTIM
  14. BLACK COHOSH [Concomitant]
     Active Substance: BLACK COHOSH
  15. EMEND [Concomitant]
     Active Substance: APREPITANT
  16. GLUCOSAMINE/CHONDROITIN /08437701/ [Concomitant]
     Active Substance: CHONDROITIN SULFATE (BOVINE)\GLUCOSAMINE SULFATE
  17. COMPAZINE [Concomitant]
     Active Substance: PROCHLORPERAZINE MALEATE
  18. DEXAMETHASONE. [Concomitant]
     Active Substance: DEXAMETHASONE
  19. HERCEPTIN [Concomitant]
     Active Substance: TRASTUZUMAB

REACTIONS (1)
  - Intestinal ischaemia [None]

NARRATIVE: CASE EVENT DATE: 20150811
